FAERS Safety Report 21689486 (Version 1)
Quarter: 2022Q4

REPORT INFORMATION
  Report Type: Spontaneous
  Country: NO (occurrence: None)
  Receive Date: 20221206
  Receipt Date: 20221206
  Transmission Date: 20230112
  Serious: Yes (Death, Hospitalization)
  Sender: FDA-Public Use
  Company Number: 2022A395569

PATIENT
  Age: 78 Year
  Sex: Female

DRUGS (1)
  1. TAGRISSO [Suspect]
     Active Substance: OSIMERTINIB
     Indication: Lung neoplasm malignant
     Route: 048
     Dates: start: 20221001, end: 20221103

REACTIONS (3)
  - Myopericarditis [Fatal]
  - Pyrexia [Unknown]
  - Pneumonitis [Fatal]

NARRATIVE: CASE EVENT DATE: 20221001
